FAERS Safety Report 26020866 (Version 2)
Quarter: 2025Q4

REPORT INFORMATION
  Report Type: Spontaneous
  Country: US (occurrence: US)
  Receive Date: 20251110
  Receipt Date: 20251120
  Transmission Date: 20260118
  Serious: No
  Sender: BAYER HEALTHCARE PHARMACEUTICALS INC.
  Company Number: US-BAYER-2025A146307

PATIENT

DRUGS (2)
  1. ESTRADIOL [Suspect]
     Active Substance: ESTRADIOL
     Route: 062
  2. MINIVELLE [Suspect]
     Active Substance: ESTRADIOL

REACTIONS (2)
  - Application site hypersensitivity [None]
  - Application site rash [None]
